FAERS Safety Report 15929272 (Version 1)
Quarter: 2019Q1

REPORT INFORMATION
  Report Type: Report from Study
  Country: EG (occurrence: EG)
  Receive Date: 20190206
  Receipt Date: 20190206
  Transmission Date: 20190417
  Serious: Yes (Other)
  Sender: FDA-Public Use
  Company Number: EG-MYLANLABS-2019M1010917

PATIENT

DRUGS (4)
  1. FLUOROURACIL. [Suspect]
     Active Substance: FLUOROURACIL
     Indication: COLORECTAL CANCER
     Dosage: SCHEDULED FOR THREE MONTHS
     Route: 065
  2. FOLINIC ACID [Suspect]
     Active Substance: LEUCOVORIN
     Indication: COLORECTAL CANCER
     Dosage: SCHEDULED FOR THREE MONTHS
     Route: 065
  3. CARNOSINE [Concomitant]
     Active Substance: CARNOSINE
     Indication: PROPHYLAXIS
     Route: 048
  4. OXALIPLATIN. [Suspect]
     Active Substance: OXALIPLATIN
     Indication: COLORECTAL CANCER
     Dosage: SCHEDULED FOR THREE MONTHS
     Route: 065

REACTIONS (1)
  - Neuropathy peripheral [Unknown]
